FAERS Safety Report 10036754 (Version 4)
Quarter: 2014Q2

REPORT INFORMATION
  Report Type: Spontaneous
  Country: US (occurrence: US)
  Receive Date: 20140326
  Receipt Date: 20140428
  Transmission Date: 20141212
  Serious: Yes (Hospitalization)
  Sender: FDA-Public Use
  Company Number: US-BIOGENIDEC-2014BI024738

PATIENT
  Age: 54 Year
  Sex: Female

DRUGS (15)
  1. TECFIDERA [Suspect]
     Indication: RELAPSING-REMITTING MULTIPLE SCLEROSIS
     Route: 048
     Dates: start: 20140310, end: 20140316
  2. TECFIDERA [Suspect]
     Indication: RELAPSING-REMITTING MULTIPLE SCLEROSIS
     Route: 048
     Dates: start: 20140317, end: 20140325
  3. TECFIDERA [Suspect]
     Indication: RELAPSING-REMITTING MULTIPLE SCLEROSIS
     Route: 048
  4. ARMOUR THYROID [Concomitant]
  5. CETIRIZINE HCL [Concomitant]
  6. CLONAZEPAM [Concomitant]
  7. CRESTOR [Concomitant]
  8. FLUOXETINE [Concomitant]
  9. SINGULAIR [Concomitant]
  10. TYLENOL EXTRA STRENGTH [Concomitant]
  11. VITAMIN B COMPLEX [Concomitant]
  12. VITAMIN D [Concomitant]
  13. WELLBUTRIN [Concomitant]
  14. URSODIOL [Concomitant]
  15. TOPIRAMATE [Concomitant]

REACTIONS (19)
  - Abdominal pain [Not Recovered/Not Resolved]
  - Nephrolithiasis [Unknown]
  - Rhinorrhoea [Not Recovered/Not Resolved]
  - Constipation [Unknown]
  - Fatigue [Not Recovered/Not Resolved]
  - Sunburn [Recovered/Resolved]
  - Muscle spasms [Not Recovered/Not Resolved]
  - Erythema [Recovered/Resolved]
  - Abdominal pain upper [Recovered/Resolved]
  - Diarrhoea [Recovered/Resolved]
  - Rash macular [Recovered/Resolved]
  - Rash [Recovered/Resolved]
  - Flushing [Unknown]
  - Pain [Not Recovered/Not Resolved]
  - Hypoaesthesia [Not Recovered/Not Resolved]
  - Anxiety [Unknown]
  - Blood urine present [Not Recovered/Not Resolved]
  - Urinary retention [Not Recovered/Not Resolved]
  - Prescribed underdose [Not Recovered/Not Resolved]
